FAERS Safety Report 6326717-X (Version None)
Quarter: 2009Q3

REPORT INFORMATION
  Report Type: 
  Country: None (occurrence: None)
  Receive Date: 20090825
  Receipt Date: 20090814
  Transmission Date: 20100115
  Serious: Yes (Hospitalization, Other)
  Sender: FDA-Public Use
  Company Number: PHHY2009NL05039

PATIENT
  Sex: Female
  Weight: 54 kg

DRUGS (11)
  1. ACLASTA [Suspect]
     Indication: OSTEOPOROSIS
     Dosage: 4 MG, ONCE/SINGLE
     Dates: start: 20090203, end: 20090203
  2. ACLASTA [Suspect]
     Indication: BONE DENSITY DECREASED
  3. VITAMIN D3 [Concomitant]
     Dosage: 1000 E PER DAY
     Dates: start: 20090101
  4. SOTALOL HYDROCHLORIDE [Concomitant]
     Indication: ATRIAL FIBRILLATION
     Dosage: UNK
  5. SOTALOL HYDROCHLORIDE [Concomitant]
     Dosage: 40 MG 2DD
     Dates: start: 20090207, end: 20090501
  6. OSTEO B PLUS [Concomitant]
  7. SINTROM [Concomitant]
     Dosage: UNK
     Dates: start: 20090205
  8. FRAXIPARIN [Concomitant]
     Indication: ANTICOAGULANT THERAPY
  9. FRAXODI [Concomitant]
     Indication: ATRIAL FIBRILLATION
     Dosage: 1DD0.6ML
     Route: 058
  10. FRAXODI [Concomitant]
     Indication: HYPERTENSION
  11. FRAXODI [Concomitant]
     Indication: THROMBOCYTOSIS

REACTIONS (13)
  - ABDOMINAL PAIN UPPER [None]
  - AORTIC VALVE DISEASE [None]
  - AORTIC VALVE INCOMPETENCE [None]
  - ATRIAL FIBRILLATION [None]
  - BONE PAIN [None]
  - C-REACTIVE PROTEIN INCREASED [None]
  - DIASTOLIC DYSFUNCTION [None]
  - DYSPNOEA [None]
  - FLANK PAIN [None]
  - LEFT ATRIAL DILATATION [None]
  - OESOPHAGEAL DISORDER [None]
  - PALPITATIONS [None]
  - THROMBOCYTOPENIA [None]
